FAERS Safety Report 6558758-1 (Version None)
Quarter: 2010Q1

REPORT INFORMATION
  Report Type: 
  Country: None (occurrence: None)
  Receive Date: 20100129
  Receipt Date: 20100121
  Transmission Date: 20100710
  Serious: Yes (Death)
  Sender: FDA-Public Use
  Company Number: GB-ABBOTT-09P-167-0606662-00

PATIENT
  Sex: Female

DRUGS (2)
  1. SEVOFLURANE [Suspect]
     Indication: SOMNOLENCE
  2. SALIBUTAMOL [Concomitant]
     Indication: ASTHMA
     Route: 055

REACTIONS (3)
  - DRUG TOXICITY [None]
  - OFF LABEL USE [None]
  - OVERDOSE [None]
